FAERS Safety Report 24173624 (Version 1)
Quarter: 2024Q3

REPORT INFORMATION
  Report Type: Spontaneous
  Country: US (occurrence: None)
  Receive Date: 20240805
  Receipt Date: 20240805
  Transmission Date: 20241016
  Serious: No
  Sender: Public
  Company Number: None

PATIENT
  Age: 59 Year

DRUGS (3)
  1. ROCURONIUM BROMIDE [Suspect]
     Active Substance: ROCURONIUM BROMIDE
  2. LIDOCAINE [Suspect]
     Active Substance: LIDOCAINE
  3. SUGAMMADEX [Suspect]
     Active Substance: SUGAMMADEX

REACTIONS (5)
  - Cardiac procedure complication [None]
  - Anaesthetic complication pulmonary [None]
  - Apnoea [None]
  - Product selection error [None]
  - Wrong product administered [None]
